FAERS Safety Report 25499800 (Version 1)
Quarter: 2025Q2

REPORT INFORMATION
  Report Type: Spontaneous
  Country: US (occurrence: None)
  Receive Date: 20250630
  Receipt Date: 20250630
  Transmission Date: 20250717
  Serious: Yes (Hospitalization, Disabling)
  Sender: FDA-CTU
  Company Number: None

PATIENT
  Age: 39 Year
  Sex: Female
  Weight: 65.25 kg

DRUGS (3)
  1. XYWAV [Suspect]
     Active Substance: CALCIUM OXYBATE\MAGNESIUM OXYBATE\POTASSIUM OXYBATE\SODIUM OXYBATE
     Indication: Hypersomnia
     Dates: start: 20230920, end: 20240503
  2. SERTRALINE [Concomitant]
     Active Substance: SERTRALINE HYDROCHLORIDE
  3. METHYLPHENIDATE [Concomitant]
     Active Substance: METHYLPHENIDATE

REACTIONS (18)
  - COVID-19 [None]
  - General physical health deterioration [None]
  - Suicidal ideation [None]
  - Failure to thrive [None]
  - Fatigue [None]
  - Malaise [None]
  - Dysphagia [None]
  - Decreased appetite [None]
  - Weight decreased [None]
  - Dry mouth [None]
  - Dysphonia [None]
  - Anxiety [None]
  - Heart rate increased [None]
  - Insomnia [None]
  - Malnutrition [None]
  - Illness [None]
  - Withdrawal syndrome [None]
  - Panic attack [None]

NARRATIVE: CASE EVENT DATE: 20231201
